FAERS Safety Report 13780989 (Version 1)
Quarter: 2017Q3

REPORT INFORMATION
  Report Type: Report from Study
  Country: None (occurrence: BR)
  Receive Date: 20170724
  Receipt Date: 20170724
  Transmission Date: 20171127
  Serious: Yes (Hospitalization)
  Sender: FDA-Public Use
  Company Number: BR-ABBVIE-17K-020-2044605-00

PATIENT
  Sex: Male
  Weight: 118 kg

DRUGS (4)
  1. HUMIRA [Suspect]
     Active Substance: ADALIMUMAB
     Indication: ANKYLOSING SPONDYLITIS
     Route: 058
     Dates: start: 20160915
  2. METHOTREXATE. [Concomitant]
     Active Substance: METHOTREXATE
     Indication: PRODUCT USED FOR UNKNOWN INDICATION
     Route: 048
  3. FOLIC ACID. [Concomitant]
     Active Substance: FOLIC ACID
     Indication: VITAMIN SUPPLEMENTATION
     Route: 048
     Dates: start: 201606
  4. KETOPROFEN. [Concomitant]
     Active Substance: KETOPROFEN
     Indication: PAIN
     Route: 048
     Dates: start: 201606

REACTIONS (9)
  - Paraesthesia [Recovering/Resolving]
  - Arthralgia [Unknown]
  - Drug effect incomplete [Unknown]
  - Gait disturbance [Unknown]
  - Peripheral swelling [Recovering/Resolving]
  - Poor peripheral circulation [Unknown]
  - Localised infection [Recovered/Resolved]
  - Limb injury [Recovered/Resolved]
  - Pain in extremity [Unknown]
